FAERS Safety Report 4707599-6 (Version None)
Quarter: 2005Q3

REPORT INFORMATION
  Report Type: 
  Country: None (occurrence: None)
  Receive Date: 20050705
  Receipt Date: 20050627
  Transmission Date: 20060218
  Serious: Yes (Other)
  Sender: FDA-Public Use
  Company Number: B0384585A

PATIENT
  Sex: Male

DRUGS (2)
  1. PAROXETINE HCL [Suspect]
     Dosage: 20MG/PER DAY/TRANSPLACENTARY
     Route: 064
  2. ANTIBIOTICS [Concomitant]

REACTIONS (9)
  - DRUG EXPOSURE DURING PREGNANCY [None]
  - FEEDING DISORDER NEONATAL [None]
  - HYPOGLYCAEMIA NEONATAL [None]
  - HYPOTONIA NEONATAL [None]
  - LETHARGY [None]
  - MOTOR DYSFUNCTION [None]
  - NEONATAL DISORDER [None]
  - POOR SUCKING REFLEX [None]
  - RESPIRATORY DISORDER NEONATAL [None]
